FAERS Safety Report 9449245 (Version 2)
Quarter: 2013Q3

REPORT INFORMATION
  Report Type: Report from Study
  Country: US (occurrence: US)
  Receive Date: 20130808
  Receipt Date: 20130812
  Transmission Date: 20140515
  Serious: Yes (Other)
  Sender: FDA-Public Use
  Company Number: US-VIIV HEALTHCARE LIMITED-A1036649A

PATIENT
  Age: 0 Day
  Sex: Female
  Weight: 2.8 kg

DRUGS (2)
  1. RETROVIR [Suspect]
     Indication: ANTIRETROVIRAL THERAPY
     Route: 064
     Dates: start: 20130626, end: 20130626
  2. COMPLERA [Suspect]
     Indication: ANTIRETROVIRAL THERAPY
     Dosage: 1TAB PER DAY
     Route: 064
     Dates: start: 20130108

REACTIONS (3)
  - Hypoxic-ischaemic encephalopathy [Unknown]
  - Premature baby [Unknown]
  - Foetal exposure during pregnancy [Unknown]
